FAERS Safety Report 23960975 (Version 1)
Quarter: 2024Q2

REPORT INFORMATION
  Report Type: Spontaneous
  Country: US (occurrence: US)
  Receive Date: 20240611
  Receipt Date: 20240611
  Transmission Date: 20240716
  Serious: Yes (Hospitalization, Other)
  Sender: FDA-Public Use
  Company Number: US-AMGEN-USASP2024112609

PATIENT

DRUGS (2)
  1. PREDNISONE [Suspect]
     Active Substance: PREDNISONE
     Indication: Hormone-refractory prostate cancer
     Dosage: 5 MILLIGRAM, BID
     Route: 065
  2. ZYTIGA [Suspect]
     Active Substance: ABIRATERONE ACETATE
     Indication: Hormone-refractory prostate cancer
     Dosage: 1000 MILLIGRAM, QD
     Route: 048

REACTIONS (29)
  - Pneumonitis [Recovered/Resolved]
  - Dyspnoea [Recovered/Resolved]
  - Hypotension [Unknown]
  - Stomatitis [Unknown]
  - Hormone-refractory prostate cancer [Unknown]
  - Drug intolerance [Unknown]
  - Diarrhoea [Unknown]
  - Decreased appetite [Unknown]
  - Weight decreased [Unknown]
  - Musculoskeletal pain [Unknown]
  - Rash maculo-papular [Unknown]
  - Fatigue [Unknown]
  - Nausea [Unknown]
  - Drug ineffective [Unknown]
  - Dyspepsia [Unknown]
  - Vomiting [Unknown]
  - Dysgeusia [Unknown]
  - Anal inflammation [Unknown]
  - Oropharyngeal pain [Unknown]
  - Epistaxis [Unknown]
  - Photosensitivity reaction [Unknown]
  - Haemoptysis [Unknown]
  - Platelet count decreased [Unknown]
  - Hypocalcaemia [Unknown]
  - Amylase increased [Unknown]
  - Muscular weakness [Unknown]
  - Skin hyperpigmentation [Unknown]
  - Abdominal distension [Unknown]
  - Malaise [Unknown]
